FAERS Safety Report 5165689-0 (Version None)
Quarter: 2006Q4

REPORT INFORMATION
  Report Type: 
  Country: None (occurrence: None)
  Receive Date: 20061206
  Receipt Date: 20061201
  Transmission Date: 20070319
  Serious: Yes (Hospitalization)
  Sender: FDA-Public Use
  Company Number: GB-JNJFOC-20061200377

PATIENT
  Age: 25 Year
  Sex: Male

DRUGS (2)
  1. ACETAMINOPHEN [Suspect]
     Route: 048
  2. ACETAMINOPHEN [Suspect]
     Indication: ANALGESIC EFFECT
     Route: 048

REACTIONS (3)
  - DYSPNOEA [None]
  - LIP SWELLING [None]
  - RASH [None]
